FAERS Safety Report 9860809 (Version 1)
Quarter: 2014Q1

REPORT INFORMATION
  Report Type: Spontaneous
  Country: US (occurrence: None)
  Receive Date: 20140131
  Receipt Date: 20140131
  Transmission Date: 20141002
  Serious: No
  Sender: FDA-Public Use
  Company Number: None

PATIENT
  Age: 23 Year
  Sex: Female
  Weight: 45.36 kg

DRUGS (1)
  1. AMPHETAMINE SALTS [Suspect]
     Indication: ATTENTION DEFICIT/HYPERACTIVITY DISORDER
     Dosage: 1 PILL EACH MORNING ONCE DAILY TAKEN BY MOUTH
     Route: 048
     Dates: start: 20080101, end: 20140101

REACTIONS (4)
  - Product substitution issue [None]
  - Abdominal pain upper [None]
  - Fatigue [None]
  - Drug withdrawal syndrome [None]
